FAERS Safety Report 9433704 (Version 3)
Quarter: 2013Q3

REPORT INFORMATION
  Report Type: Spontaneous
  Country: US (occurrence: US)
  Receive Date: 20130731
  Receipt Date: 20130828
  Transmission Date: 20140515
  Serious: No
  Sender: FDA-Public Use
  Company Number: US-ASTRAZENECA-2013SE50482

PATIENT
  Sex: Female
  Weight: 74.8 kg

DRUGS (7)
  1. SEROQUEL XR [Suspect]
     Indication: BIPOLAR DISORDER
     Route: 048
     Dates: start: 2012, end: 2013
  2. SEROQUEL XR [Suspect]
     Indication: BIPOLAR DISORDER
     Route: 048
     Dates: start: 2013
  3. SEROQUEL XR [Suspect]
     Indication: BIPOLAR DISORDER
     Route: 048
  4. LITHIUM [Concomitant]
     Indication: MOOD SWINGS
     Dosage: 100 MG IN THE MORNIG AND 200 MG IN THE NIGHT
  5. CLONAZEPAM [Concomitant]
     Indication: ANXIETY
  6. AMBIEN [Concomitant]
     Indication: SLEEP DISORDER
     Dates: start: 2011
  7. CITALOPRAM [Concomitant]
     Indication: DEPRESSION

REACTIONS (4)
  - Anxiety [Unknown]
  - Intentional drug misuse [Unknown]
  - Drug dose omission [Unknown]
  - Circumstance or information capable of leading to medication error [Unknown]
